FAERS Safety Report 25817695 (Version 3)
Quarter: 2025Q4

REPORT INFORMATION
  Report Type: Spontaneous
  Country: GB (occurrence: GB)
  Receive Date: 20250918
  Receipt Date: 20251013
  Transmission Date: 20260119
  Serious: No
  Sender: PFIZER
  Company Number: GB-PFIZER INC-202500181715

PATIENT
  Age: 13 Year
  Sex: Female

DRUGS (2)
  1. GENOTROPIN [Suspect]
     Active Substance: SOMATROPIN
     Indication: Growth hormone deficiency
     Dosage: 1.4 MG, 4 DAYS A WEEK
     Route: 058
     Dates: start: 202208
  2. GENOTROPIN [Suspect]
     Active Substance: SOMATROPIN
     Dosage: 1.2 MG, 3 DAYS A WEEK
     Route: 058
     Dates: start: 202208

REACTIONS (2)
  - Injection site pain [Unknown]
  - Device delivery system issue [Unknown]
